FAERS Safety Report 18241629 (Version 1)
Quarter: 2020Q3

REPORT INFORMATION
  Report Type: Spontaneous
  Country: US (occurrence: US)
  Receive Date: 20200905
  Receipt Date: 20200905
  Transmission Date: 20201103
  Serious: Yes (Hospitalization)
  Sender: FDA-Public Use
  Company Number: None

PATIENT
  Age: 46 Year
  Sex: Female
  Weight: 47 kg

DRUGS (1)
  1. CISPLATIN (119875) [Suspect]
     Active Substance: CISPLATIN
     Dates: end: 20200818

REACTIONS (11)
  - Haemoglobin decreased [None]
  - Inflammation [None]
  - Tumour associated fever [None]
  - Tachycardia [None]
  - Fatigue [None]
  - Therapy interrupted [None]
  - Asthenia [None]
  - Pyrexia [None]
  - Tremor [None]
  - Neutrophil count decreased [None]
  - Chills [None]

NARRATIVE: CASE EVENT DATE: 20200824
